FAERS Safety Report 7457472-8 (Version None)
Quarter: 2011Q2

REPORT INFORMATION
  Report Type: 
  Country: None (occurrence: None)
  Receive Date: 20110504
  Receipt Date: 20110427
  Transmission Date: 20111010
  Serious: Yes (Other)
  Sender: FDA-Public Use
  Company Number: DE-TEVA-268747GER

PATIENT
  Sex: Female
  Weight: 10.5 kg

DRUGS (1)
  1. ACICLOVIR-RATIOPHARM 500 MG [Suspect]
     Indication: HERPES SIMPLEX
     Route: 042

REACTIONS (4)
  - INJECTION SITE EXTRAVASATION [None]
  - INJECTION SITE PAIN [None]
  - INJECTION SITE ERYTHEMA [None]
  - INJECTION SITE SWELLING [None]
